FAERS Safety Report 8119259-2 (Version None)
Quarter: 2012Q1

REPORT INFORMATION
  Report Type: 
  Country: None (occurrence: None)
  Receive Date: 20120207
  Receipt Date: 20120125
  Transmission Date: 20120608
  Serious: Yes (Hospitalization, Disabling, Other)
  Sender: FDA-Public Use
  Company Number: US-ELI_LILLY_AND_COMPANY-US201201008551

PATIENT
  Sex: Female

DRUGS (2)
  1. CYMBALTA [Suspect]
     Indication: DEPRESSION
     Dosage: 30 MG, QD
     Dates: start: 20110501
  2. LEVOTHYROXINE SODIUM [Concomitant]
     Dosage: 150 UG, UNKNOWN

REACTIONS (12)
  - CONSTIPATION [None]
  - AGITATION [None]
  - INSOMNIA [None]
  - MUSCULAR WEAKNESS [None]
  - CYSTITIS [None]
  - ATRIAL FIBRILLATION [None]
  - ANAEMIA [None]
  - CARDIAC FAILURE CONGESTIVE [None]
  - FALL [None]
  - DRUG INEFFECTIVE [None]
  - TRANSIENT ISCHAEMIC ATTACK [None]
  - NERVE INJURY [None]
